FAERS Safety Report 17102362 (Version 2)
Quarter: 2019Q4

REPORT INFORMATION
  Report Type: Spontaneous
  Country: JP (occurrence: JP)
  Receive Date: 20191202
  Receipt Date: 20191217
  Transmission Date: 20200122
  Serious: Yes (Death, Hospitalization, Other)
  Sender: FDA-Public Use
  Company Number: JP-GILEAD-2019-0439724

PATIENT
  Age: 73 Year
  Sex: Male

DRUGS (7)
  1. EPCLUSA [Suspect]
     Active Substance: SOFOSBUVIR\VELPATASVIR
     Indication: CHRONIC HEPATITIS C
     Dosage: 1 DOSAGE FORM, QD
     Route: 048
     Dates: start: 20190814, end: 20191105
  2. EPCLUSA [Suspect]
     Active Substance: SOFOSBUVIR\VELPATASVIR
     Indication: HEPATIC CIRRHOSIS
  3. AMINOLEBAN [Concomitant]
     Active Substance: AMINO ACIDS, SOURCE UNSPECIFIED
  4. RACOL [PARACETAMOL;TRAMADOL HYDROCHLORIDE] [Concomitant]
  5. SAMSCA [Concomitant]
     Active Substance: TOLVAPTAN
  6. ALDACTONE A [Concomitant]
     Active Substance: SPIRONOLACTONE
  7. ALBUMIN [Concomitant]
     Active Substance: ALBUMIN HUMAN

REACTIONS (5)
  - Fall [Unknown]
  - Fall [Unknown]
  - Asphyxia [Fatal]
  - Rib fracture [Unknown]
  - Vomiting [Fatal]

NARRATIVE: CASE EVENT DATE: 20191105
